FAERS Safety Report 5384909-0 (Version None)
Quarter: 2007Q3

REPORT INFORMATION
  Report Type: 
  Country: None (occurrence: None)
  Receive Date: 20070709
  Receipt Date: 20070628
  Transmission Date: 20080115
  Serious: Yes (Hospitalization)
  Sender: FDA-Public Use
  Company Number: 2007BI013640

PATIENT
  Age: 38 Year
  Sex: Male

DRUGS (1)
  1. AVONEX [Suspect]
     Indication: MULTIPLE SCLEROSIS
     Dosage: 30 UG QW IM
     Route: 030
     Dates: start: 20041201, end: 20070516

REACTIONS (4)
  - HEMIPARESIS [None]
  - ISCHAEMIC STROKE [None]
  - SPEECH DISORDER [None]
  - VASCULAR OCCLUSION [None]
